FAERS Safety Report 6913617-7 (Version None)
Quarter: 2010Q3

REPORT INFORMATION
  Report Type: 
  Country: None (occurrence: None)
  Receive Date: 20100809
  Receipt Date: 20080214
  Transmission Date: 20110219
  Serious: No
  Sender: FDA-Public Use
  Company Number: US-PFIZER INC-2003037717

PATIENT
  Sex: Female
  Weight: 74.84 kg

DRUGS (11)
  1. LIPITOR [Suspect]
     Indication: CARDIAC DISORDER
     Route: 048
     Dates: start: 20030801
  2. OXYCONTIN [Concomitant]
     Route: 048
  3. PERCOCET [Concomitant]
     Route: 048
  4. VALIUM [Concomitant]
     Route: 048
  5. FUROSEMIDE [Concomitant]
     Route: 048
  6. ATENOLOL [Concomitant]
     Route: 048
  7. POTASSIUM [Concomitant]
     Route: 048
  8. VITAMIN TAB [Concomitant]
     Route: 048
  9. ACETYLSALICYLIC ACID SRT [Concomitant]
     Route: 048
  10. NIASPAN [Concomitant]
     Route: 048
     Dates: start: 20030801
  11. CO-Q-10 [Concomitant]
     Route: 048
     Dates: start: 20030801

REACTIONS (2)
  - AMNESIA [None]
  - PAIN [None]
